FAERS Safety Report 6416583-6 (Version None)
Quarter: 2009Q4

REPORT INFORMATION
  Report Type: 
  Country: None (occurrence: None)
  Receive Date: 20091023
  Receipt Date: 20091012
  Transmission Date: 20100525
  Serious: Yes (Death, Hospitalization)
  Sender: FDA-Public Use
  Company Number: 89607

PATIENT
  Age: 82 Year
  Sex: Female

DRUGS (1)
  1. CYCLOSPORINE [Suspect]
     Indication: IMMUNOSUPPRESSION

REACTIONS (12)
  - ATRIAL FIBRILLATION [None]
  - BLOOD SODIUM DECREASED [None]
  - CEREBRAL ARTERY STENOSIS [None]
  - ENCEPHALITIS [None]
  - FALL [None]
  - HUMERUS FRACTURE [None]
  - HYDROCEPHALUS [None]
  - ISCHAEMIC STROKE [None]
  - MENINGITIS CRYPTOCOCCAL [None]
  - RESPIRATORY MONILIASIS [None]
  - SEPSIS [None]
  - TRANSIENT ISCHAEMIC ATTACK [None]
